FAERS Safety Report 8987422 (Version 1)
Quarter: 2012Q4

REPORT INFORMATION
  Report Type: 
  Country: TN (occurrence: TN)
  Receive Date: 20121227
  Receipt Date: 20121227
  Transmission Date: 20130627
  Serious: Yes (Death, Other)
  Sender: FDA-Public Use
  Company Number: TN-BAXTER-2012BAX028546

PATIENT
  Age: 19 Year
  Sex: Female

DRUGS (4)
  1. FEIBA NF [Suspect]
     Indication: BLEEDING POSTPARTUM
  2. NOVOSEVEN [Suspect]
     Indication: BLEEDING POSTPARTUM
  3. NOVOSEVEN [Suspect]
  4. PREDNISONE [Suspect]
     Indication: DRUG USE FOR UNKNOWN INDICATION
     Route: 065

REACTIONS (2)
  - Drug ineffective [Fatal]
  - Shock haemorrhagic [Fatal]
